FAERS Safety Report 23942676 (Version 1)
Quarter: 2024Q2

REPORT INFORMATION
  Report Type: Spontaneous
  Country: JP (occurrence: JP)
  Receive Date: 20240605
  Receipt Date: 20240605
  Transmission Date: 20240716
  Serious: Yes (Other)
  Sender: FDA-Public Use
  Company Number: JP-Eisai-202402437_LEN_P_1

PATIENT
  Age: 68 Year
  Sex: Male

DRUGS (1)
  1. LENVIMA [Suspect]
     Active Substance: LENVATINIB
     Indication: Product used for unknown indication
     Dosage: 1 WEEK ON, 1 WEEK OFF
     Route: 048
     Dates: end: 2024

REACTIONS (1)
  - Ejection fraction decreased [Not Recovered/Not Resolved]
